FAERS Safety Report 21568126 (Version 2)
Quarter: 2022Q4

REPORT INFORMATION
  Report Type: Spontaneous
  Country: US (occurrence: US)
  Receive Date: 20221108
  Receipt Date: 20221123
  Transmission Date: 20230112
  Serious: Yes (Hospitalization, Other)
  Sender: FDA-Public Use
  Company Number: US-JNJFOC-20221058116

PATIENT
  Age: 47 Year
  Sex: Male
  Weight: 86.260 kg

DRUGS (8)
  1. HALOPERIDOL [Suspect]
     Active Substance: HALOPERIDOL
     Indication: Schizophrenia
     Dosage: AT BEDTIME
     Route: 048
     Dates: start: 202208
  2. HALOPERIDOL [Suspect]
     Active Substance: HALOPERIDOL
     Dosage: AT BEDTIME
     Route: 048
     Dates: start: 202208
  3. HALOPERIDOL [Suspect]
     Active Substance: HALOPERIDOL
     Dosage: AT BEDTIME
     Route: 048
     Dates: start: 202208
  4. HALDOL DECANOATE [Suspect]
     Active Substance: HALOPERIDOL DECANOATE
     Indication: Schizophrenia
     Route: 030
     Dates: start: 202208
  5. HALDOL DECANOATE [Suspect]
     Active Substance: HALOPERIDOL DECANOATE
     Route: 030
     Dates: start: 202210
  6. TRAMADOL [Concomitant]
     Active Substance: TRAMADOL
  7. TYLENOL [Concomitant]
     Active Substance: ACETAMINOPHEN
  8. MELATONIN [Concomitant]
     Active Substance: MELATONIN
     Indication: Nutritional supplementation

REACTIONS (15)
  - Suicidal ideation [Recovered/Resolved]
  - Hospitalisation [Unknown]
  - Schizophrenia [Recovering/Resolving]
  - Paranoia [Not Recovered/Not Resolved]
  - Anhedonia [Recovering/Resolving]
  - Pain [Recovering/Resolving]
  - Retching [Unknown]
  - Libido increased [Unknown]
  - Sexual dysfunction [Unknown]
  - Sciatica [Recovered/Resolved]
  - Feeling abnormal [Unknown]
  - Anxiety [Unknown]
  - Insomnia [Not Recovered/Not Resolved]
  - Nausea [Unknown]
  - Vomiting [Unknown]

NARRATIVE: CASE EVENT DATE: 20220101
